FAERS Safety Report 4640999-1 (Version None)
Quarter: 2005Q2

REPORT INFORMATION
  Report Type: 
  Country: None (occurrence: None)
  Receive Date: 20050419
  Receipt Date: 20050419
  Transmission Date: 20051028
  Serious: Yes (Life-Threatening)
  Sender: FDA-Public Use
  Company Number: None

PATIENT
  Age: 37 Year
  Sex: Male
  Weight: 83 kg

DRUGS (2)
  1. UNASYN [Suspect]
     Indication: INFECTION
     Dosage: UNASYN  IV   3GM
     Route: 042
     Dates: start: 20041231
  2. AMOXIL/PCN [Concomitant]

REACTIONS (4)
  - FLUSHING [None]
  - HYPERHIDROSIS [None]
  - HYPOTENSION [None]
  - SWELLING [None]
